FAERS Safety Report 9226188 (Version 3)
Quarter: 2013Q3

REPORT INFORMATION
  Report Type: Report from Study
  Country: US (occurrence: US)
  Receive Date: 20130411
  Receipt Date: 20130829
  Transmission Date: 20140515
  Serious: Yes (Hospitalization, Other)
  Sender: FDA-Public Use
  Company Number: US-ELI_LILLY_AND_COMPANY-US201112002983

PATIENT
  Age: 63 Year
  Sex: Female

DRUGS (6)
  1. TERIPARATIDE [Suspect]
     Indication: OSTEOPOROSIS
     Dosage: 20 UG, QD
     Route: 058
     Dates: start: 20111208
  2. TERIPARATIDE [Suspect]
     Dosage: 20 UG, QD
     Route: 058
  3. TERIPARATIDE [Suspect]
     Dosage: 20 UG, QD
     Route: 058
  4. TERIPARATIDE [Suspect]
     Dosage: 20 UG, QD
     Route: 058
  5. TERIPARATIDE [Suspect]
     Dosage: 20 UG, QD
     Route: 058
  6. TERIPARATIDE [Suspect]
     Dosage: 20 UG, QD
     Route: 058

REACTIONS (17)
  - Myasthenia gravis [Unknown]
  - Neoplasm malignant [Unknown]
  - Myasthenia gravis [Unknown]
  - Iron deficiency anaemia [Unknown]
  - Somnolence [Unknown]
  - Fatigue [Unknown]
  - Pallor [Unknown]
  - Feeling abnormal [Unknown]
  - Dizziness [Recovered/Resolved]
  - Dizziness [Unknown]
  - Arthralgia [Unknown]
  - Diarrhoea [Not Recovered/Not Resolved]
  - Headache [Unknown]
  - Injection site pain [Recovered/Resolved]
  - Nausea [Unknown]
  - Feeling abnormal [Unknown]
  - Fall [Unknown]
